FAERS Safety Report 7242744-2 (Version None)
Quarter: 2011Q1

REPORT INFORMATION
  Report Type: 
  Country: None (occurrence: None)
  Receive Date: 20110125
  Receipt Date: 20110117
  Transmission Date: 20110831
  Serious: Yes (Other)
  Sender: FDA-Public Use
  Company Number: BR-ASTELLAS-2011US000234

PATIENT

DRUGS (11)
  1. PREDNISONE [Concomitant]
     Dosage: 7.5 MG, UID/QD
     Route: 048
     Dates: start: 20100319
  2. MYCOPHENOLATE SODIUM [Concomitant]
     Dosage: 1080 DF, UID/QD
     Route: 048
     Dates: start: 20100402, end: 20100415
  3. TACROLIMUS [Suspect]
     Dosage: 1 MG, UID/QD
     Route: 048
     Dates: start: 20110112
  4. TACROLIMUS [Suspect]
     Dosage: 4 MG, UID/QD
     Route: 048
     Dates: start: 20091125, end: 20100311
  5. MYCOPHENOLATE SODIUM [Concomitant]
     Indication: RENAL TRANSPLANT
     Dosage: 720 DF, BID
     Route: 048
     Dates: start: 20090723, end: 20100401
  6. MYCOPHENOLATE SODIUM [Concomitant]
     Dosage: 360 DF, BID
     Route: 048
     Dates: start: 20100416
  7. TACROLIMUS [Suspect]
     Dosage: 5 MG, UID/QD
     Route: 048
     Dates: start: 20091111, end: 20091124
  8. TACROLIMUS [Suspect]
     Dosage: 2 MG, UID/QD
     Route: 048
     Dates: start: 20100312, end: 20110111
  9. PREDNISONE [Concomitant]
     Indication: RENAL TRANSPLANT
     Dosage: 10 MG, UID/QD
     Route: 048
     Dates: start: 20100107, end: 20100318
  10. TACROLIMUS [Suspect]
     Dosage: 6 MG, UID/QD
     Route: 048
     Dates: start: 20091104, end: 20091110
  11. TACROLIMUS [Suspect]
     Indication: RENAL TRANSPLANT
     Dosage: 7 MG, UID/QD
     Route: 048
     Dates: start: 20090723

REACTIONS (3)
  - NEPHRITIS [None]
  - KIDNEY FIBROSIS [None]
  - RENAL TUBULAR ATROPHY [None]
